FAERS Safety Report 4309686-3 (Version None)
Quarter: 2004Q1

REPORT INFORMATION
  Report Type: 
  Country: None (occurrence: None)
  Receive Date: 20040301
  Receipt Date: 20040224
  Transmission Date: 20041129
  Serious: Yes (Death, Congenital Anomaly)
  Sender: FDA-Public Use
  Company Number: 2004-02-1604

PATIENT

DRUGS (6)
  1. NASONEX [Suspect]
     Dosage: NASAL SPRAY
  2. ALFATIL [Suspect]
     Dosage: ORAL
     Route: 048
  3. DOLIPRANE [Suspect]
  4. ERYTHROCINE [Suspect]
     Dosage: ORAL
     Route: 048
  5. MAXILASE [Suspect]
     Dosage: ORAL
     Route: 048
  6. RHINOFLUIMUCIL NASAL SOLUTION [Suspect]
     Dosage: INHALATION
     Route: 055

REACTIONS (6)
  - ABORTION INDUCED [None]
  - ADACTYLY [None]
  - COMPLICATIONS OF MATERNAL EXPOSURE TO THERAPEUTIC DRUGS [None]
  - LIMB REDUCTION DEFECT [None]
  - MATERNAL DRUGS AFFECTING FOETUS [None]
  - RETROGNATHIA [None]
